FAERS Safety Report 5466433-X (Version None)
Quarter: 2007Q3

REPORT INFORMATION
  Report Type: 
  Country: None (occurrence: None)
  Receive Date: 20070820
  Receipt Date: 20070531
  Transmission Date: 20080115
  Serious: No
  Sender: FDA-Public Use
  Company Number: WAES 0706USA00111

PATIENT
  Sex: Male

DRUGS (1)
  1. JANUVIA [Suspect]
     Indication: BLOOD GLUCOSE INCREASED
     Dosage: DAILY/PO; 100 MG/DAILY/PO
     Route: 048

REACTIONS (2)
  - BLOOD GLUCOSE DECREASED [None]
  - WRONG TECHNIQUE IN DRUG USAGE PROCESS [None]
